FAERS Safety Report 16992465 (Version 1)
Quarter: 2019Q4

REPORT INFORMATION
  Report Type: Spontaneous
  Country: US (occurrence: US)
  Receive Date: 20191105
  Receipt Date: 20191105
  Transmission Date: 20200122
  Serious: No
  Sender: FDA-Public Use
  Company Number: US-009507513-1910USA007254

PATIENT
  Sex: Male

DRUGS (2)
  1. PREGNYL [Suspect]
     Active Substance: CHORIOGONADOTROPIN ALFA
     Indication: HORMONE LEVEL ABNORMAL
  2. PREGNYL [Suspect]
     Active Substance: CHORIOGONADOTROPIN ALFA
     Indication: SPERM CONCENTRATION ABNORMAL
     Dosage: UNK

REACTIONS (3)
  - Product dose omission [Unknown]
  - No adverse event [Unknown]
  - Product availability issue [Unknown]

NARRATIVE: CASE EVENT DATE: 20190819
